FAERS Safety Report 4608273-7 (Version None)
Quarter: 2005Q1

REPORT INFORMATION
  Report Type: 
  Country: None (occurrence: None)
  Receive Date: 20050311
  Receipt Date: 20050226
  Transmission Date: 20050727
  Serious: Yes (Other)
  Sender: FDA-Public Use
  Company Number: CIP05000495

PATIENT
  Age: 76 Year
  Sex: Female

DRUGS (5)
  1. ACTONEL [Suspect]
     Indication: OSTEOPOROSIS
     Dosage: 5 MG DAILY, ORAL
     Route: 048
     Dates: start: 20050224, end: 20050227
  2. CINNARIZINE              (CINNARIZINE) [Concomitant]
  3. AMLODIPINE [Concomitant]
  4. CALCITRIOL [Concomitant]
  5. CALTRATE + D          (COLECALCIFEROL, CALCIUM CARBONATE) [Concomitant]

REACTIONS (6)
  - DIZZINESS [None]
  - DRUG HYPERSENSITIVITY [None]
  - EYELID OEDEMA [None]
  - OEDEMA PERIPHERAL [None]
  - PAIN [None]
  - PAIN IN EXTREMITY [None]
